FAERS Safety Report 8359985-3 (Version None)
Quarter: 2012Q2

REPORT INFORMATION
  Report Type: 
  Country: None (occurrence: None)
  Receive Date: 20120515
  Receipt Date: 20120509
  Transmission Date: 20120825
  Serious: Yes (Hospitalization)
  Sender: FDA-Public Use
  Company Number: PHHY2012EC026858

PATIENT
  Sex: Female

DRUGS (1)
  1. DIOVAN [Suspect]
     Indication: HYPERTENSION
     Dosage: 160 MG, 01 TABLET DAILY
     Route: 048
     Dates: start: 20111101, end: 20120320

REACTIONS (5)
  - HYPOKALAEMIA [None]
  - HYPONATRAEMIA [None]
  - DRUG-INDUCED LIVER INJURY [None]
  - ABDOMINAL PAIN [None]
  - DIZZINESS [None]
